FAERS Safety Report 4809978-5 (Version None)
Quarter: 2005Q4

REPORT INFORMATION
  Report Type: 
  Country: None (occurrence: None)
  Receive Date: 20051024
  Receipt Date: 20051013
  Transmission Date: 20060501
  Serious: Yes (Other)
  Sender: FDA-Public Use
  Company Number: 2005130696

PATIENT
  Sex: 0

DRUGS (1)
  1. SOLU-MEDROL [Suspect]
     Indication: MIXED CONNECTIVE TISSUE DISEASE

REACTIONS (1)
  - T-CELL TYPE ACUTE LEUKAEMIA [None]
